FAERS Safety Report 14665528 (Version 1)
Quarter: 2018Q1

REPORT INFORMATION
  Report Type: Spontaneous
  Country: RU (occurrence: RU)
  Receive Date: 20180321
  Receipt Date: 20180321
  Transmission Date: 20180509
  Serious: Yes (Congenital Anomaly)
  Sender: FDA-Public Use
  Company Number: RU-ASTRAZENECA-2018SE34640

PATIENT

DRUGS (2)
  1. SYMBICORT [Suspect]
     Active Substance: BUDESONIDE\FORMOTEROL FUMARATE DIHYDRATE
     Indication: DYSPNOEA
     Dosage: 160/4.5 MCG TWICE A DAY
     Route: 064
     Dates: start: 20140609
  2. NASONEX [Concomitant]
     Active Substance: MOMETASONE FUROATE
     Indication: SEASONAL ALLERGY
     Route: 045

REACTIONS (1)
  - Trisomy 21 [Unknown]
